FAERS Safety Report 10580510 (Version 2)
Quarter: 2014Q4

REPORT INFORMATION
  Report Type: Spontaneous
  Country: IN (occurrence: IN)
  Receive Date: 20141113
  Receipt Date: 20141113
  Transmission Date: 20150529
  Serious: Yes (Other)
  Sender: FDA-Public Use
  Company Number: IN-ACCORD-026848

PATIENT
  Age: 42 Year
  Sex: Female

DRUGS (3)
  1. OXALIPLATIN. [Concomitant]
     Active Substance: OXALIPLATIN
     Indication: COLON CANCER
     Dosage: FOLFOX-6 REGIMEN
  2. FLUOROURACIL. [Suspect]
     Active Substance: FLUOROURACIL
     Indication: COLON CANCER
     Dosage: FOLFOX-6 REGIMEN?RECEIVED FIRST AND SECOND CYCLE
  3. FOLINIC ACID [Concomitant]
     Active Substance: LEUCOVORIN
     Indication: COLON CANCER
     Dosage: FOLFOX-6 REGIMEN??RECEIVED FIRST AND SECOND CYCLE

REACTIONS (4)
  - Rash [Recovered/Resolved with Sequelae]
  - Blister [Unknown]
  - Infusion site reaction [Unknown]
  - Pigmentation disorder [Recovering/Resolving]
